FAERS Safety Report 11692703 (Version 2)
Quarter: 2015Q4

REPORT INFORMATION
  Report Type: Spontaneous
  Country: TW (occurrence: TW)
  Receive Date: 20151103
  Receipt Date: 20151121
  Transmission Date: 20160304
  Serious: Yes (Other)
  Sender: FDA-Public Use
  Company Number: TW-SUN PHARMACEUTICAL INDUSTRIES LTD-2015RR-105433

PATIENT

DRUGS (2)
  1. CARBOPLATIN. [Suspect]
     Active Substance: CARBOPLATIN
     Indication: OVARIAN CANCER
     Dosage: 5 COURSES AT GW18, 21, 24, 27 AND 30
     Route: 065
  2. PACLITAXEL. [Suspect]
     Active Substance: PACLITAXEL
     Indication: OVARIAN CANCER
     Dosage: 5 COURSES AT GW18, 21, 24, 27 AND 30
     Route: 065

REACTIONS (4)
  - Nausea [Unknown]
  - Exposure during pregnancy [Recovered/Resolved]
  - Alopecia [Unknown]
  - Vomiting [Unknown]
